FAERS Safety Report 10989417 (Version 6)
Quarter: 2015Q2

REPORT INFORMATION
  Report Type: Spontaneous
  Country: US (occurrence: US)
  Receive Date: 20150406
  Receipt Date: 20150629
  Transmission Date: 20150821
  Serious: Yes (Hospitalization, Other)
  Sender: FDA-Public Use
  Company Number: US-PFIZER INC-2015117107

PATIENT
  Age: 80 Year
  Sex: Female
  Weight: 64 kg

DRUGS (12)
  1. MUCINEX [Concomitant]
     Active Substance: GUAIFENESIN
     Dosage: UNK
  2. TIKOSYN [Suspect]
     Active Substance: DOFETILIDE
     Indication: ATRIAL FIBRILLATION
     Dosage: 250 ?G, 2X/DAY
     Dates: start: 20141122
  3. TIKOSYN [Suspect]
     Active Substance: DOFETILIDE
     Dosage: 250 ?G, UNK
  4. VITAMIN B [Concomitant]
     Active Substance: VITAMIN B
     Dosage: UNK
     Dates: start: 20150321
  5. R-ALPHA LIPOIC ACID [Concomitant]
     Dosage: UNK
     Dates: start: 20150321
  6. ELIQUIS [Suspect]
     Active Substance: APIXABAN
     Dosage: 2.5 UNK, UNK
  7. VITAMIN C [Concomitant]
     Active Substance: ASCORBIC ACID
     Dosage: UNK
     Dates: start: 20150321
  8. BENADRYL [Concomitant]
     Active Substance: DIPHENHYDRAMINE HYDROCHLORIDE
     Dosage: 12.5 MG, UNK
  9. DILTIAZEM HCL [Suspect]
     Active Substance: DILTIAZEM HYDROCHLORIDE
     Indication: ATRIAL FIBRILLATION
     Dosage: 240 MG, QD
     Dates: start: 20141122, end: 20150206
  10. ELIQUIS [Suspect]
     Active Substance: APIXABAN
     Indication: THROMBOSIS PROPHYLAXIS
     Dosage: 2.5 MG, 2X/DAY
     Dates: start: 20141122
  11. VITAMIN D3 [Concomitant]
     Active Substance: CHOLECALCIFEROL
     Dosage: UNK
     Dates: start: 20150321
  12. FOLATE [Concomitant]
     Active Substance: FOLATE SODIUM
     Dosage: UNK
     Dates: start: 20150321

REACTIONS (24)
  - Sneezing [Not Recovered/Not Resolved]
  - Cough [Not Recovered/Not Resolved]
  - Swelling face [Recovered/Resolved]
  - Initial insomnia [Not Recovered/Not Resolved]
  - Pruritus [Recovered/Resolved]
  - Dyspnoea [Recovered/Resolved]
  - Fatigue [Unknown]
  - Nervousness [Not Recovered/Not Resolved]
  - Respiratory tract congestion [Not Recovered/Not Resolved]
  - Dysphonia [Not Recovered/Not Resolved]
  - Fall [Not Recovered/Not Resolved]
  - Somnolence [Not Recovered/Not Resolved]
  - Rash [Not Recovered/Not Resolved]
  - Asthenia [Unknown]
  - Gait disturbance [Not Recovered/Not Resolved]
  - Thirst [Not Recovered/Not Resolved]
  - Weight increased [Not Recovered/Not Resolved]
  - Nausea [Not Recovered/Not Resolved]
  - Pruritus [Not Recovered/Not Resolved]
  - Peripheral swelling [Not Recovered/Not Resolved]
  - Abdominal distension [Not Recovered/Not Resolved]
  - Urticaria [Not Recovered/Not Resolved]
  - Erythema [Recovered/Resolved]
  - Hypersensitivity [Unknown]

NARRATIVE: CASE EVENT DATE: 201411
